FAERS Safety Report 15780483 (Version 5)
Quarter: 2020Q2

REPORT INFORMATION
  Report Type: Spontaneous
  Country: US (occurrence: US)
  Receive Date: 20190102
  Receipt Date: 20200429
  Transmission Date: 20200713
  Serious: Yes (Other)
  Sender: FDA-Public Use
  Company Number: US-AMGEN-USASP2018186408

PATIENT
  Age: 63 Year
  Sex: Female

DRUGS (3)
  1. ENBREL [Suspect]
     Active Substance: ETANERCEPT
     Indication: PRODUCT USED FOR UNKNOWN INDICATION
     Dosage: UNK
     Route: 065
     Dates: end: 2018
  2. MTX [Concomitant]
     Active Substance: METHOTREXATE SODIUM
     Dosage: 25 MILLIGRAM,  (1 IN 1)
  3. MTX [Concomitant]
     Active Substance: METHOTREXATE SODIUM
     Dosage: 25 MG, UNK (1 IN 1)

REACTIONS (7)
  - Injection site reaction [Unknown]
  - Cellulitis [Unknown]
  - Drug ineffective [Unknown]
  - Musculoskeletal stiffness [Unknown]
  - Fatigue [Unknown]
  - Drug intolerance [Unknown]
  - Arthritis [Unknown]

NARRATIVE: CASE EVENT DATE: 2018
